FAERS Safety Report 15065891 (Version 1)
Quarter: 2018Q2

REPORT INFORMATION
  Report Type: Report from Study
  Country: GB (occurrence: GB)
  Receive Date: 20180626
  Receipt Date: 20180626
  Transmission Date: 20180711
  Serious: No
  Sender: FDA-Public Use
  Company Number: GB-BIOVERATIV-2018BV000400

PATIENT
  Age: 17 Year
  Sex: Male

DRUGS (1)
  1. ELOCTA [Suspect]
     Active Substance: EFMOROCTOCOG ALFA
     Indication: FACTOR VIII DEFICIENCY
     Dosage: PROPHYLAXIS - STARTED BETWEEN OCTOBER AND NOVEMBER 2017
     Route: 042

REACTIONS (1)
  - Haemorrhage [Unknown]
